FAERS Safety Report 16940025 (Version 20)
Quarter: 2022Q4

REPORT INFORMATION
  Report Type: Report from Study
  Country: CN (occurrence: None)
  Receive Date: 20191021
  Receipt Date: 20221130
  Transmission Date: 20230113
  Serious: Yes (Life-Threatening, Hospitalization)
  Sender: FDA-Public Use
  Company Number: CN-ROCHE-2444246

PATIENT
  Age: 54 Year
  Sex: Female
  Weight: 46.5 kg

DRUGS (53)
  1. BEVACIZUMAB [Suspect]
     Active Substance: BEVACIZUMAB
     Indication: Malignant peritoneal neoplasm
     Dosage: DATE OF MOST RECENT DOSE OF BEVACIZUMAB (705 MG) PRIOR TO SAE ONSET: 20/SEP/2019.
     Route: 042
     Dates: start: 20190625
  2. PACLITAXEL [Suspect]
     Active Substance: PACLITAXEL
     Indication: Malignant peritoneal neoplasm
     Dosage: DATE OF MOST RECENT DOSE OF PACLITAXEL PRIOR TO SAE ONSET: 20/SEP/2019 (240 MG)?DATE OF MOST RECENT
     Route: 042
     Dates: start: 20190604
  3. PACLITAXEL [Suspect]
     Active Substance: PACLITAXEL
     Indication: Fallopian tube cancer
  4. PACLITAXEL [Suspect]
     Active Substance: PACLITAXEL
     Indication: Ovarian cancer
  5. CARBOPLATIN [Suspect]
     Active Substance: CARBOPLATIN
     Indication: Malignant peritoneal neoplasm
     Dosage: AREA UNDER THE CURVE (AUC) OF 6 MG/ML/MIN ON DAY 1 OF EACH 21-DAY CYCLE.?DATE OF MOST RECENT DOSE OF
     Route: 042
     Dates: start: 20190604
  6. CARBOPLATIN [Suspect]
     Active Substance: CARBOPLATIN
     Indication: Fallopian tube cancer
  7. CARBOPLATIN [Suspect]
     Active Substance: CARBOPLATIN
     Indication: Ovarian cancer
  8. DIPHENHYDRAMINE [Concomitant]
     Active Substance: DIPHENHYDRAMINE
     Dates: start: 20190807, end: 20190807
  9. DIPHENHYDRAMINE [Concomitant]
     Active Substance: DIPHENHYDRAMINE
     Dates: start: 20190920, end: 20190920
  10. DIPHENHYDRAMINE [Concomitant]
     Active Substance: DIPHENHYDRAMINE
     Dates: start: 20190830, end: 20190830
  11. TROPISETRON [Concomitant]
     Active Substance: TROPISETRON
     Indication: Prophylaxis of nausea and vomiting
     Dates: start: 20190920, end: 20190920
  12. TROPISETRON [Concomitant]
     Active Substance: TROPISETRON
     Dates: start: 20191101, end: 20191101
  13. TROPISETRON [Concomitant]
     Active Substance: TROPISETRON
     Dates: start: 20190807, end: 20190807
  14. TROPISETRON [Concomitant]
     Active Substance: TROPISETRON
     Dates: start: 20190830, end: 20190830
  15. RANITIDINE [Concomitant]
     Active Substance: RANITIDINE
     Dates: start: 20190807, end: 20190807
  16. RANITIDINE [Concomitant]
     Active Substance: RANITIDINE
     Dates: start: 20190920, end: 20190920
  17. RANITIDINE [Concomitant]
     Active Substance: RANITIDINE
     Dates: start: 20190830, end: 20190830
  18. DEXAMETHASONE [Concomitant]
     Active Substance: DEXAMETHASONE
     Dates: start: 20190807, end: 20190807
  19. DEXAMETHASONE [Concomitant]
     Active Substance: DEXAMETHASONE
     Dates: start: 20190920, end: 20190920
  20. DEXAMETHASONE [Concomitant]
     Active Substance: DEXAMETHASONE
     Dates: start: 20190830, end: 20190830
  21. DEXAMETHASONE [Concomitant]
     Active Substance: DEXAMETHASONE
     Dates: start: 20191013, end: 20191013
  22. VITAMIN C [Concomitant]
     Active Substance: ASCORBIC ACID
     Dates: start: 20190920, end: 20190920
  23. VITAMIN C [Concomitant]
     Active Substance: ASCORBIC ACID
     Dates: start: 20191101, end: 20191101
  24. VITAMIN C [Concomitant]
     Active Substance: ASCORBIC ACID
     Dates: start: 20190807, end: 20190807
  25. VITAMIN C [Concomitant]
     Active Substance: ASCORBIC ACID
     Dates: start: 20190830, end: 20190830
  26. VITAMIN C [Concomitant]
     Active Substance: ASCORBIC ACID
     Dates: start: 20191013, end: 20191013
  27. VITAMIN B6 [Concomitant]
     Active Substance: PYRIDOXINE HYDROCHLORIDE
     Dates: start: 20190920, end: 20190920
  28. VITAMIN B6 [Concomitant]
     Active Substance: PYRIDOXINE HYDROCHLORIDE
     Dates: start: 20190717, end: 20190817
  29. VITAMIN B6 [Concomitant]
     Active Substance: PYRIDOXINE HYDROCHLORIDE
     Dates: start: 20191101, end: 20191101
  30. VITAMIN B6 [Concomitant]
     Active Substance: PYRIDOXINE HYDROCHLORIDE
     Dates: start: 20190807, end: 20190807
  31. VITAMIN B6 [Concomitant]
     Active Substance: PYRIDOXINE HYDROCHLORIDE
     Dates: start: 20190830, end: 20190830
  32. VITAMIN B6 [Concomitant]
     Active Substance: PYRIDOXINE HYDROCHLORIDE
     Dates: start: 20191013, end: 20191013
  33. POTASSIUM CHLORIDE [Concomitant]
     Active Substance: POTASSIUM CHLORIDE
     Dates: start: 20190920, end: 20190920
  34. POTASSIUM CHLORIDE [Concomitant]
     Active Substance: POTASSIUM CHLORIDE
     Dates: start: 20191101, end: 20191101
  35. POTASSIUM CHLORIDE [Concomitant]
     Active Substance: POTASSIUM CHLORIDE
     Dates: start: 20190807, end: 20190807
  36. POTASSIUM CHLORIDE [Concomitant]
     Active Substance: POTASSIUM CHLORIDE
     Dates: start: 20190830, end: 20190830
  37. POTASSIUM CHLORIDE [Concomitant]
     Active Substance: POTASSIUM CHLORIDE
     Dates: start: 20191012
  38. POTASSIUM CHLORIDE [Concomitant]
     Active Substance: POTASSIUM CHLORIDE
     Dates: start: 20191011, end: 20191017
  39. POTASSIUM CHLORIDE [Concomitant]
     Active Substance: POTASSIUM CHLORIDE
     Dates: start: 20191013, end: 20191013
  40. METOCLOPRAMIDE [Concomitant]
     Active Substance: METOCLOPRAMIDE
     Indication: Prophylaxis
     Dates: start: 20190920, end: 20190920
  41. METOCLOPRAMIDE [Concomitant]
     Active Substance: METOCLOPRAMIDE
     Dates: start: 20191101, end: 20191101
  42. METOCLOPRAMIDE [Concomitant]
     Active Substance: METOCLOPRAMIDE
     Dates: start: 20190807, end: 20190807
  43. METOCLOPRAMIDE [Concomitant]
     Active Substance: METOCLOPRAMIDE
     Dates: start: 20190830, end: 20190830
  44. DIAZEPAM [Concomitant]
     Active Substance: DIAZEPAM
     Route: 042
     Dates: start: 20190920, end: 20190920
  45. DIAZEPAM [Concomitant]
     Active Substance: DIAZEPAM
     Route: 042
     Dates: start: 20191101, end: 20191101
  46. DIAZEPAM [Concomitant]
     Active Substance: DIAZEPAM
     Route: 042
     Dates: start: 20190807, end: 20190807
  47. DIAZEPAM [Concomitant]
     Active Substance: DIAZEPAM
     Route: 042
     Dates: start: 20190830, end: 20190830
  48. AESCIN [Concomitant]
     Dates: start: 20190807, end: 20190807
  49. RIVAROXABAN [Concomitant]
     Active Substance: RIVAROXABAN
     Dates: start: 20190602, end: 201906
  50. METOPROLOL [Concomitant]
     Active Substance: METOPROLOL
     Indication: Arrhythmia
     Dates: start: 20191015, end: 20191017
  51. METOPROLOL [Concomitant]
     Active Substance: METOPROLOL
     Dates: start: 20191012, end: 20191012
  52. FERRIC POLYSACCHARIDE COMPLEX [Concomitant]
     Active Substance: FERRIC POLYSACCHARIDE COMPLEX
     Dates: start: 20191016, end: 20191016
  53. PANTOPRAZOLE [Concomitant]
     Active Substance: PANTOPRAZOLE
     Dates: start: 20190920, end: 20190920

REACTIONS (1)
  - Myelosuppression [Recovered/Resolved]

NARRATIVE: CASE EVENT DATE: 20190818
